FAERS Safety Report 8193409 (Version 2)
Quarter: 2012Q4

REPORT INFORMATION
  Report Type: 
  Country: US (occurrence: US)
  Receive Date: 20111021
  Receipt Date: 20121024
  Transmission Date: 20130627
  Serious: Yes (Hospitalization)
  Sender: FDA-Public Use
  Company Number: US-GLAXOSMITHKLINE-A0949918A

PATIENT
  Sex: Female

DRUGS (4)
  1. LAMOTRIGINE [Suspect]
     Indication: DEPRESSION
     Dosage: 100MG Per day
     Route: 048
     Dates: start: 20100331, end: 201004
  2. LAMICTAL [Suspect]
     Indication: DEPRESSION
     Route: 048
     Dates: end: 2010
  3. EFFEXOR [Concomitant]
     Indication: DEPRESSION
  4. ASPIRIN [Concomitant]

REACTIONS (3)
  - Toxic epidermal necrolysis [Not Recovered/Not Resolved]
  - Stevens-Johnson syndrome [Unknown]
  - Blindness [Unknown]
